FAERS Safety Report 17994242 (Version 3)
Quarter: 2020Q4

REPORT INFORMATION
  Report Type: Spontaneous
  Country: US (occurrence: US)
  Receive Date: 20200708
  Receipt Date: 20201008
  Transmission Date: 20210113
  Serious: No
  Sender: FDA-Public Use
  Company Number: US-PFIZER INC-2016427312

PATIENT
  Age: 97 Year
  Sex: Female

DRUGS (2)
  1. LYRICA [Suspect]
     Active Substance: PREGABALIN
     Dosage: 25 MG, 2X/DAY (1 CAP (25MG TOTAL) BY MOUTH TWO (2) TIMES DAILY)
     Route: 048
     Dates: start: 20190509
  2. LYRICA [Suspect]
     Active Substance: PREGABALIN
     Indication: POST HERPETIC NEURALGIA
     Dosage: 25 MG, 2X/DAY (1 CAP BY MOUTH TWO(2) TIMES DAILY )
     Route: 048
     Dates: start: 20160829

REACTIONS (1)
  - Confusional state [Unknown]
